FAERS Safety Report 17439507 (Version 1)
Quarter: 2020Q1

REPORT INFORMATION
  Report Type: Spontaneous
  Country: US (occurrence: US)
  Receive Date: 20200219
  Receipt Date: 20200219
  Transmission Date: 20200409
  Serious: Yes (Hospitalization)
  Sender: FDA-Public Use
  Company Number: None

PATIENT
  Age: 86 Year
  Sex: Male
  Weight: 81 kg

DRUGS (8)
  1. VALIUM 5MG TABLETS [Concomitant]
  2. VITAMIN D2 [Concomitant]
     Active Substance: ERGOCALCIFEROL
  3. ZYTIGA [Suspect]
     Active Substance: ABIRATERONE ACETATE
     Indication: PROSTATE CANCER
     Route: 048
     Dates: start: 20190620
  4. ATORVASTATIN 40MG [Concomitant]
     Active Substance: ATORVASTATIN
  5. LUPRON 45 MG (Q 6 MONTH) [Concomitant]
  6. PREDNISONE 5MG TABLETS [Concomitant]
     Active Substance: PREDNISONE
  7. CALCIUM CARBONATE 500MG [Concomitant]
  8. WARFARIN 5MG TABLETS [Concomitant]

REACTIONS (3)
  - Pulmonary oedema [None]
  - International normalised ratio increased [None]
  - Therapy cessation [None]

NARRATIVE: CASE EVENT DATE: 20200213
